FAERS Safety Report 4968672-0 (Version None)
Quarter: 2006Q2

REPORT INFORMATION
  Report Type: 
  Country: None (occurrence: None)
  Receive Date: 20060405
  Receipt Date: 20060328
  Transmission Date: 20061013
  Serious: Yes (Hospitalization)
  Sender: FDA-Public Use
  Company Number: 2006039383

PATIENT
  Sex: Male

DRUGS (11)
  1. SOLU-MEDROL [Suspect]
     Indication: NEURALGIA
     Dosage: 500 MG, INTRAVENOUS
     Route: 042
  2. NEURONTIN [Suspect]
     Indication: NEURALGIA
     Dosage: 900 MG (300  MG, 3 IN 1 D)
  3. PENMIX (INSULIN HUMAN, INSULIN HUMAN INJECTION, ISOPHANE) [Concomitant]
  4. METFORMIN HCL [Concomitant]
  5. TRAMADOL HCL [Concomitant]
  6. FLUOXETINE [Concomitant]
  7. CORTICOSTEROIDS (CORTICOSTEROIDS) [Concomitant]
  8. TEGRETOL [Concomitant]
  9. ACETAMINOPHEN [Concomitant]
  10. CODEINE (CODEINE) [Concomitant]
  11. PREDNISOLONE [Concomitant]

REACTIONS (8)
  - BEDRIDDEN [None]
  - BONE DISORDER [None]
  - DRUG INEFFECTIVE [None]
  - FALL [None]
  - INADEQUATE ANALGESIA [None]
  - INCORRECT DRUG ADMINISTRATION RATE [None]
  - INFUSION RELATED REACTION [None]
  - LOSS OF CONSCIOUSNESS [None]
